FAERS Safety Report 25166689 (Version 1)
Quarter: 2025Q2

REPORT INFORMATION
  Report Type: Spontaneous
  Country: SI (occurrence: SI)
  Receive Date: 20250407
  Receipt Date: 20250407
  Transmission Date: 20250716
  Serious: Yes (Other)
  Sender: BAYER
  Company Number: SI-BAYER-2025A043348

PATIENT
  Age: 51 Year
  Sex: Male

DRUGS (5)
  1. KERENDIA [Suspect]
     Active Substance: FINERENONE
     Indication: Chronic kidney disease
     Dates: start: 2024
  2. METFORMIN [Concomitant]
     Active Substance: METFORMIN HYDROCHLORIDE
  3. SEMAGLUTIDE [Concomitant]
     Active Substance: SEMAGLUTIDE
  4. ROSUVASTATIN [Concomitant]
     Active Substance: ROSUVASTATIN
  5. ASPIRIN [Concomitant]
     Active Substance: ASPIRIN

REACTIONS (3)
  - Hyperkalaemia [None]
  - Blood creatinine increased [None]
  - Glomerular filtration rate decreased [None]
